FAERS Safety Report 4754179-2 (Version None)
Quarter: 2005Q3

REPORT INFORMATION
  Report Type: 
  Country: None (occurrence: None)
  Receive Date: 20050825
  Receipt Date: 20041221
  Transmission Date: 20060218
  Serious: Yes (Hospitalization)
  Sender: FDA-Public Use
  Company Number: 200419172US

PATIENT
  Age: 55 Year
  Sex: Female

DRUGS (5)
  1. INDAPAMIDE [Suspect]
  2. NEULASTA [Suspect]
     Dosage: 6 MG
     Dates: start: 20041008, end: 20041008
  3. QUINAPRIL [Suspect]
  4. DOXORUBICIN [Suspect]
     Dates: start: 20041007, end: 20041007
  5. CYCLOPHOSPHAMIDE [Suspect]

REACTIONS (3)
  - DIZZINESS [None]
  - HYPOTENSION [None]
  - PALPITATIONS [None]
